FAERS Safety Report 4853055-4 (Version None)
Quarter: 2005Q4

REPORT INFORMATION
  Report Type: 
  Country: None (occurrence: None)
  Receive Date: 20051214
  Receipt Date: 20051205
  Transmission Date: 20060501
  Serious: Yes (Hospitalization)
  Sender: FDA-Public Use
  Company Number: FR-AVENTIS-200514032FR

PATIENT
  Age: 85 Year
  Sex: Female
  Weight: 63 kg

DRUGS (5)
  1. LASILIX [Suspect]
     Indication: ESSENTIAL HYPERTENSION
     Route: 042
     Dates: start: 20051016, end: 20051017
  2. BACTRIM [Suspect]
     Indication: EMPHYSEMA
     Route: 048
     Dates: start: 20051018, end: 20051020
  3. AUGMENTIN [Suspect]
     Indication: EMPHYSEMA
     Route: 048
     Dates: start: 20051020, end: 20051022
  4. TAVANIC [Concomitant]
     Indication: EMPHYSEMA
     Route: 048
     Dates: start: 20051020
  5. TPN [Concomitant]
     Indication: EMPHYSEMA
     Route: 048
     Dates: start: 20051018

REACTIONS (3)
  - DERMATITIS BULLOUS [None]
  - LABORATORY TEST ABNORMAL [None]
  - ULCER [None]
